FAERS Safety Report 9196813 (Version 2)
Quarter: 2013Q2

REPORT INFORMATION
  Report Type: Spontaneous
  Country: US (occurrence: None)
  Receive Date: 20120703
  Receipt Date: 20121031
  Transmission Date: 20140414
  Serious: No
  Sender: FDA-Public Use
  Company Number: PHEH2012US007664

PATIENT
  Age: 46 Year
  Sex: Female
  Weight: 52.2 kg

DRUGS (10)
  1. GILENYA [Suspect]
     Indication: MULTIPLE SCLEROSIS
     Route: 048
     Dates: start: 20120307
  2. FAMPRIDINE (FAMPRIDINE) [Concomitant]
  3. BACLOFEN (BACLOFEN) (BACLOFEN) [Concomitant]
  4. OXYBUTYNIN CHLORIDE (OXYBUTYNIN HYDROCHLORIDE) [Concomitant]
  5. LISINOPRIL (LISINOPRIL) [Concomitant]
  6. CLONAZEPAM (CLONAZEPAM) (CLONAZEPAM) [Concomitant]
  7. CEPHALEXIN (CEFALEXIN) [Concomitant]
  8. VITAMINS WITH MINERALS (NO INGREDIENTS/SUBSTANCES) [Concomitant]
  9. TYLENOL (PARACETAMOL) [Concomitant]
  10. DITROPAN (OXYBUTYNIN HYDROCHLORIDE) [Concomitant]

REACTIONS (6)
  - Abdominal pain upper [None]
  - Vomiting [None]
  - Diarrhoea [None]
  - Inappropriate schedule of drug administration [None]
  - Nausea [None]
  - Abdominal discomfort [None]
